FAERS Safety Report 23932219 (Version 3)
Quarter: 2024Q3

REPORT INFORMATION
  Report Type: Spontaneous
  Country: JP (occurrence: JP)
  Receive Date: 20240603
  Receipt Date: 20240925
  Transmission Date: 20241017
  Serious: Yes (Hospitalization)
  Sender: MERCK
  Company Number: JP-MSD-M2024-19765

PATIENT
  Age: 59 Year
  Sex: Female

DRUGS (2)
  1. KEYTRUDA [Suspect]
     Active Substance: PEMBROLIZUMAB
     Indication: Triple negative breast cancer
     Dosage: 200 MILLIGRAM, Q3W
     Route: 041
     Dates: start: 202312, end: 202404
  2. KEYTRUDA [Suspect]
     Active Substance: PEMBROLIZUMAB
     Dosage: 200 MILLIGRAM, Q3W
     Route: 041
     Dates: start: 2024, end: 2024

REACTIONS (2)
  - Adrenal disorder [Recovered/Resolved]
  - Therapy partial responder [Unknown]

NARRATIVE: CASE EVENT DATE: 20240101
